FAERS Safety Report 9453605 (Version 1)
Quarter: 2013Q1

REPORT INFORMATION
  Report Type: Not Available
  Country: US (occurrence: US)
  Receive Date: 20120321
  Receipt Date: 20120321
  Transmission Date: 20140127
  Serious: Yes (Hospitalization, Other)
  Sender: FDA-Public Use
  Company Number: US-LUNDBECK-DKLU1073460

PATIENT
  Sex: Male

DRUGS (12)
  1. SABRIL     (TABLET) [Suspect]
     Indication: EPILEPSY
     Dosage: 1 1/2 TABLET
     Route: 048
     Dates: start: 20110323
  2. SABRIL     (TABLET) [Suspect]
     Indication: EPILEPSY
  3. SABRIL     (TABLET) [Suspect]
     Indication: TEMPORAL LOBE EPILEPSY
  4. SABRIL     (TABLET) [Suspect]
     Indication: TUBEROUS SCLEROSIS
  5. SABRIL     (TABLET) [Suspect]
     Indication: CONVULSION
  6. SABRIL     (TABLET) [Suspect]
     Indication: COMPLEX PARTIAL SEIZURES
  7. ONFI [Concomitant]
     Indication: PRODUCT USED FOR UNKNOWN INDICATION
     Dates: start: 201201
  8. TRILEPTAL [Concomitant]
     Indication: PRODUCT USED FOR UNKNOWN INDICATION
  9. ACTH [Concomitant]
     Indication: PRODUCT USED FOR UNKNOWN INDICATION
  10. TEGRETOL [Concomitant]
     Indication: PRODUCT USED FOR UNKNOWN INDICATION
  11. TOPAMAX [Concomitant]
     Indication: PRODUCT USED FOR UNKNOWN INDICATION
  12. DEPAKOTE [Concomitant]
     Indication: PRODUCT USED FOR UNKNOWN INDICATION

REACTIONS (4)
  - Self injurious behaviour [Unknown]
  - Psychotic behaviour [Unknown]
  - Thinking abnormal [Unknown]
  - Drug ineffective [Unknown]
